FAERS Safety Report 7413135-6 (Version None)
Quarter: 2011Q2

REPORT INFORMATION
  Report Type: 
  Country: None (occurrence: None)
  Receive Date: 20110413
  Receipt Date: 20110406
  Transmission Date: 20111010
  Serious: Yes (Hospitalization)
  Sender: FDA-Public Use
  Company Number: CHNY2011JP00448

PATIENT
  Sex: Female

DRUGS (4)
  1. PURSENNID [Suspect]
     Indication: CONSTIPATION
     Dosage: UNK
     Route: 065
  2. GLYCERIN [Concomitant]
     Indication: CONSTIPATION
     Dosage: UNK
  3. MAGNESIUM OXIDE [Concomitant]
     Indication: CONSTIPATION
     Dosage: UNK MG, UNK
  4. SODIUM PICOSULFATE [Concomitant]
     Indication: CONSTIPATION
     Dosage: UNK

REACTIONS (1)
  - ILEUS [None]
